FAERS Safety Report 23956497 (Version 1)
Quarter: 2024Q2

REPORT INFORMATION
  Report Type: Spontaneous
  Country: NL (occurrence: NL)
  Receive Date: 20240610
  Receipt Date: 20240610
  Transmission Date: 20240715
  Serious: Yes (Hospitalization)
  Sender: FDA-Public Use
  Company Number: NL-Oxford Pharmaceuticals, LLC-2157938

PATIENT
  Age: 14 Year
  Sex: Male

DRUGS (6)
  1. BACLOFEN [Suspect]
     Active Substance: BACLOFEN
     Indication: Neurodegeneration with brain iron accumulation disorder
     Route: 065
  2. PIRITRAMIDE [Suspect]
     Active Substance: PIRITRAMIDE
     Route: 042
  3. GABAPENTIN [Suspect]
     Active Substance: GABAPENTIN
  4. CLONAZEPAM [Suspect]
     Active Substance: CLONAZEPAM
  5. NALOXONE [Suspect]
     Active Substance: NALOXONE
  6. REMIFENTANIL [Suspect]
     Active Substance: REMIFENTANIL

REACTIONS (3)
  - Drug interaction [Unknown]
  - Respiratory depression [Recovered/Resolved]
  - Depressed level of consciousness [Recovered/Resolved]
